FAERS Safety Report 10785210 (Version 3)
Quarter: 2015Q1

REPORT INFORMATION
  Report Type: Report from Study
  Country: GB (occurrence: None)
  Receive Date: 20150209
  Receipt Date: 20150227
  Transmission Date: 20150721
  Serious: Yes (Hospitalization)
  Sender: FDA-Public Use
  Company Number: 2014MPI01650

PATIENT
  Age: 66 Year
  Sex: Male
  Weight: 53 kg

DRUGS (36)
  1. VINBLASTINE (VINBLASTINE SULFATE) INJECTION [Suspect]
     Active Substance: VINBLASTINE
     Indication: HODGKIN^S DISEASE
     Route: 042
     Dates: start: 20140926, end: 20141210
  2. METOCHLOPRAMIDE (METOCLOPRAMIDE HYDROCHLORIDE) [Concomitant]
  3. CHLORHEXIDINE (CHLORHEXIDINE DIACETATE) [Concomitant]
  4. DALTEPARIN (DALTEPARIN) [Concomitant]
  5. FILGRASTIM [Concomitant]
     Active Substance: FILGRASTIM
  6. ACYCLOVIR (ACICLOVIR) (ACICLOVIR) [Concomitant]
     Active Substance: ACYCLOVIR
  7. DOXORUBICIN (DOXORUBICIN) INJECTION [Suspect]
     Active Substance: DOXORUBICIN
     Indication: HODGKIN^S DISEASE
     Route: 042
     Dates: start: 20140926, end: 20141210
  8. DIFLAM (DICLOFENAC POTASSIUM) [Concomitant]
  9. SANDO K (POTASSIUM CHLORIDE) [Concomitant]
     Active Substance: POTASSIUM CHLORIDE
  10. IBUPROFEN. [Concomitant]
     Active Substance: IBUPROFEN
  11. TAZOCIN (PIPERACILLIN SODIUM, TAZOBACTAM SODIUM) [Concomitant]
  12. MEROPENEM (MEROPENEM TRIHYDRATE) [Concomitant]
     Active Substance: MEROPENEM
  13. LACTULOSE. [Concomitant]
     Active Substance: LACTULOSE
  14. PARACETAMOL [Concomitant]
     Active Substance: ACETAMINOPHEN
  15. SANDO K (POTASSIUM CHLORIDE) [Concomitant]
     Active Substance: POTASSIUM CHLORIDE
  16. DACARBAZINE (DACARBAZINE) INJECTION [Suspect]
     Active Substance: DACARBAZINE
     Indication: HODGKIN^S DISEASE
     Route: 042
     Dates: start: 20140926, end: 20141203
  17. SETTLERS (CALCIUM CARBONATE, MAGNESIUM CARBONATE) [Concomitant]
  18. ONDEANSETRN (ONDANSETRON HYDROCHLORIDE) [Concomitant]
  19. CHLORHEXIDINE (CHLORHEXIDINE DIACETATE) [Concomitant]
  20. POTASSIUM CHLORIDE. [Concomitant]
     Active Substance: POTASSIUM CHLORIDE
  21. MEROPENEM (MEROPENEM TRIHYDRATE) [Concomitant]
     Active Substance: MEROPENEM
  22. PABRINEX (ASCORBIC ACID, NICOTINAMIDE, PYRIDOXINE HYDROCHLORIDE, RIBOPLAVIN, THIAMINE HYDROCHLORIDE) [Concomitant]
  23. BRENTUXIMAB VEDOTIN (BRENTUXIMAB VEDOTIN) INJECTION [Suspect]
     Active Substance: BRENTUXIMAB VEDOTIN
     Indication: HODGKIN^S DISEASE
     Route: 042
     Dates: start: 20140926, end: 20141203
  24. LEVOFLOXACIN. [Concomitant]
     Active Substance: LEVOFLOXACIN
  25. PABRINEX (ASCORBIC ACID, NICOTINAMIDE, PYRIDOXINE HYDROCHLORIDE, RIBOFLAVIN SODIUM PHOSPHATE.  THIAMINE HYDROCHLORIDE) [Concomitant]
  26. ONDANSETRON. [Concomitant]
     Active Substance: ONDANSETRON
  27. ACYCLOVIR (ACICLOVIR) (ACICLOVIR) [Concomitant]
     Active Substance: ACYCLOVIR
  28. VITAMIN K [Concomitant]
     Active Substance: PHYTONADIONE
  29. FORTISIP (CARBOHYDRATES NOS, FATS NOS, MINERALS NOS, PROTEIN, VITAMINS NOS) [Concomitant]
  30. TRAMADOL (TRAMADOL HYDROCHLORIDE) [Concomitant]
     Active Substance: TRAMADOL HYDROCHLORIDE
  31. PHOSPHATE (SODIUM PHOSPHATE, SODIUM PHOSPHATE MONOBASIC DIHYDRATE)) [Concomitant]
  32. TRAMADOL (TRAMADOL HYDROCHLORIDE) [Concomitant]
     Active Substance: TRAMADOL HYDROCHLORIDE
  33. ALLOPURINOL. [Concomitant]
     Active Substance: ALLOPURINOL
  34. PHOSPHATE (POTASSIUM BICARBONATE, SODIUM PHOSPHATE MONOBASIC) [Concomitant]
  35. FLUCONAZOLE. [Concomitant]
     Active Substance: FLUCONAZOLE
  36. NYSTATIN. [Concomitant]
     Active Substance: NYSTATIN

REACTIONS (3)
  - Febrile neutropenia [None]
  - Neutropenic sepsis [None]
  - Pneumocystis jirovecii pneumonia [None]

NARRATIVE: CASE EVENT DATE: 20141205
